FAERS Safety Report 16541020 (Version 2)
Quarter: 2019Q3

REPORT INFORMATION
  Report Type: Spontaneous
  Country: US (occurrence: US)
  Receive Date: 20190708
  Receipt Date: 20190913
  Transmission Date: 20191004
  Serious: No
  Sender: FDA-Public Use
  Company Number: US-AMGEN INC.-USASP2019105928

PATIENT
  Age: 72 Year
  Sex: Male

DRUGS (25)
  1. AIMOVIG [Suspect]
     Active Substance: ERENUMAB-AOOE
     Dosage: 70 MILLIGRAM, QMO
     Route: 065
     Dates: start: 20190628
  2. TRAZODONE [Concomitant]
     Active Substance: TRAZODONE HYDROCHLORIDE
     Indication: SLEEP APNOEA SYNDROME
     Dosage: 140 MILLIGRAM, QHS
  3. TOPAMAX [Concomitant]
     Active Substance: TOPIRAMATE
     Dosage: 50 MILLIGRAM, BID (TWO TABLET)
  4. DICYCLOMINE [DICYCLOVERINE HYDROCHLORIDE] [Concomitant]
     Dosage: 10 MILLIGRAM, BID (TWO CAPSULE)
  5. SINOL M [Concomitant]
     Active Substance: CAPSICUM
     Dosage: TWO PUFFS EACH NOSTRIL TRN 4HRS
  6. COQ10 [TOCOPHERYL ACETATE;UBIDECARENONE] [Concomitant]
     Dosage: 100 MILLIGRAM (THREE IN MORNING)
  7. E [TOCOPHEROL] [Concomitant]
     Dosage: 400 INTERNATIONAL UNIT
  8. VITAMIN D3 [Concomitant]
     Active Substance: CHOLECALCIFEROL
     Dosage: 2000 INTERNATIONAL UNIT
  9. CLONAZEPAM. [Concomitant]
     Active Substance: CLONAZEPAM
     Indication: SLEEP APNOEA SYNDROME
     Dosage: 0.5 MILLIGRAM, QHS
  10. FLOMAX [Concomitant]
     Active Substance: TAMSULOSIN HYDROCHLORIDE
     Dosage: 0.4 MILLIGRAM, BID (ONE TABLET)
  11. VENLAFAXINE [Concomitant]
     Active Substance: VENLAFAXINE HYDROCHLORIDE
     Dosage: 150 MILLIGRAM (ONE IN MORNING)
  12. WELLBUTRIN [Concomitant]
     Active Substance: BUPROPION HYDROCHLORIDE
     Dosage: 300 MILLIGRAM (ONE IN MORNING)
  13. OCUVITE [ASCORBIC ACID;RETINOL;TOCOPHEROL] [Concomitant]
     Dosage: 25 MILLIGRAM
  14. METHYLPHENIDATE. [Concomitant]
     Active Substance: METHYLPHENIDATE
     Dosage: 20 MILLIGRAM MORNING AND (10 MG AT 4PM AND 9PM)
  15. FENTANYL. [Concomitant]
     Active Substance: FENTANYL
     Indication: ABDOMINAL PAIN
     Dosage: 25 MILLIGRAM (TRANSDERMAL PATCH EVERY 72 HRS)
     Dates: start: 2012
  16. BOSWELLIA [Concomitant]
     Active Substance: DIETARY SUPPLEMENT\HERBALS
     Dosage: 307 MILLIGRAM, BID
  17. CENTRUM MEN [Concomitant]
     Dosage: UNK
  18. DEXILANT [Concomitant]
     Active Substance: DEXLANSOPRAZOLE
     Dosage: 60 MILLIGRAM (ONE AND HALF HOUR BEFORE BREAKFAST)
  19. SYNTHROID [Concomitant]
     Active Substance: LEVOTHYROXINE SODIUM
     Dosage: 88 MICROGRAM (ONE TABLET IN MORNING)
  20. ONDANSETRON [Concomitant]
     Active Substance: ONDANSETRON
     Indication: NAUSEA
     Dosage: 4 MILLIGRAM, TID
  21. ASPIRIN [ACETYLSALICYLIC ACID] [Concomitant]
     Active Substance: ASPIRIN
     Dosage: 325 MILLIGRAM, QD (IN MORNING)
  22. LIPITOR [Concomitant]
     Active Substance: ATORVASTATIN CALCIUM
     Dosage: 80 MILLIGRAM, QHS
  23. AIMOVIG [Suspect]
     Active Substance: ERENUMAB-AOOE
     Indication: MIGRAINE PROPHYLAXIS
     Dosage: 70 MILLIGRAM, QMO
     Route: 065
  24. LIDOCAINE. [Concomitant]
     Active Substance: LIDOCAINE
     Dosage: FOUR PERCENT
  25. VITAMIN B12 [Concomitant]
     Active Substance: CYANOCOBALAMIN
     Dosage: 500 MICROGRAM

REACTIONS (7)
  - Head injury [Unknown]
  - Headache [Unknown]
  - Drug ineffective [Unknown]
  - Limb injury [Unknown]
  - Injection site haemorrhage [Unknown]
  - Fall [Unknown]
  - Back injury [Unknown]

NARRATIVE: CASE EVENT DATE: 2019
